FAERS Safety Report 7490832-8 (Version None)
Quarter: 2011Q2

REPORT INFORMATION
  Report Type: 
  Country: None (occurrence: None)
  Receive Date: 20110519
  Receipt Date: 20110513
  Transmission Date: 20111010
  Serious: Yes (Hospitalization)
  Sender: FDA-Public Use
  Company Number: US-ROXANE LABORATORIES, INC.-2011-RO-00654RO

PATIENT
  Age: 7 Year
  Sex: Male

DRUGS (2)
  1. DEXAMETHASONE [Suspect]
  2. HYDROCORTISONE [Suspect]
     Dosage: 1 MG

REACTIONS (1)
  - POSTERIOR REVERSIBLE ENCEPHALOPATHY SYNDROME [None]
